FAERS Safety Report 5702823-5 (Version None)
Quarter: 2008Q2

REPORT INFORMATION
  Report Type: 
  Country: None (occurrence: None)
  Receive Date: 20080411
  Receipt Date: 20080403
  Transmission Date: 20081010
  Serious: Yes (Other)
  Sender: FDA-Public Use
  Company Number: PL-BAYER-200816212GPV

PATIENT
  Sex: Female

DRUGS (1)
  1. ULTRAVIST 300 [Suspect]
     Indication: UNEVALUABLE EVENT

REACTIONS (1)
  - ANAPHYLACTIC SHOCK [None]
